FAERS Safety Report 8290315-1 (Version None)
Quarter: 2012Q2

REPORT INFORMATION
  Report Type: 
  Country: None (occurrence: None)
  Receive Date: 20120417
  Receipt Date: 20120403
  Transmission Date: 20120825
  Serious: Yes (Hospitalization)
  Sender: FDA-Public Use
  Company Number: PHHO2011DE01049

PATIENT
  Sex: Male
  Weight: 96 kg

DRUGS (2)
  1. PREDNISOLONE [Concomitant]
     Indication: LIVER TRANSPLANT
     Dosage: 5 MG, PER DAY
     Route: 048
     Dates: start: 20110113
  2. EVEROLIMUS [Suspect]
     Indication: LIVER TRANSPLANT
     Dosage: 2 MG, UNK
     Route: 048
     Dates: start: 20110113

REACTIONS (3)
  - HEPATIC STEATOSIS [None]
  - TRANSAMINASES INCREASED [None]
  - HEPATOTOXICITY [None]
